FAERS Safety Report 8013876-6 (Version None)
Quarter: 2011Q4

REPORT INFORMATION
  Report Type: 
  Country: None (occurrence: None)
  Receive Date: 20111229
  Receipt Date: 20111223
  Transmission Date: 20120403
  Serious: Yes (Other)
  Sender: FDA-Public Use
  Company Number: CH-PFIZER INC-2011140835

PATIENT
  Sex: Female

DRUGS (3)
  1. EFFEXOR XR [Suspect]
     Dosage: 375 MG, 1X/DAY
     Route: 064
     Dates: start: 20010101
  2. EFFEXOR XR [Suspect]
     Dosage: 300 MG, 1X/DAY
     Route: 064
  3. LAMICTAL [Suspect]
     Dosage: 50 MG, 1X/DAY
     Route: 064
     Dates: start: 20090601, end: 20110205

REACTIONS (3)
  - MATERNAL EXPOSURE TIMING UNSPECIFIED [None]
  - WEIGHT DECREASED [None]
  - FOETAL MALPOSITION [None]
